FAERS Safety Report 8915272 (Version 2)
Quarter: 2012Q4

REPORT INFORMATION
  Report Type: 
  Country: US (occurrence: US)
  Receive Date: 20121119
  Receipt Date: 20121123
  Transmission Date: 20130627
  Serious: Yes (Hospitalization, Other)
  Sender: FDA-Public Use
  Company Number: US-PFIZER INC-HQWYE087726OCT04

PATIENT
  Age: 61 Year
  Sex: Female
  Weight: 56 kg

DRUGS (4)
  1. PREMARIN [Suspect]
     Indication: HORMONE REPLACEMENT THERAPY
     Dosage: 0.9 mg, UNK
     Route: 048
     Dates: start: 1986, end: 199207
  2. PREMARIN [Suspect]
     Indication: MENOPAUSE
  3. PROVERA [Suspect]
     Indication: HORMONE REPLACEMENT THERAPY
     Dosage: 10 mg, UNK
     Route: 048
     Dates: start: 1986, end: 199207
  4. PROVERA [Suspect]
     Indication: MENOPAUSE

REACTIONS (2)
  - Breast cancer metastatic [Unknown]
  - Depression [Unknown]
